FAERS Safety Report 6169361-X (Version None)
Quarter: 2009Q2

REPORT INFORMATION
  Report Type: 
  Country: None (occurrence: None)
  Receive Date: 20090428
  Receipt Date: 20090418
  Transmission Date: 20091009
  Serious: Yes (Other)
  Sender: FDA-Public Use
  Company Number: US-RANBAXY-2009US-23565

PATIENT

DRUGS (1)
  1. CETIRIZINE [Suspect]
     Indication: HYPERSENSITIVITY
     Dosage: 50MG AT ONCE
     Route: 048
     Dates: start: 20090418, end: 20090418

REACTIONS (3)
  - DIZZINESS [None]
  - DRY MOUTH [None]
  - OVERDOSE [None]
